FAERS Safety Report 21327944 (Version 1)
Quarter: 2022Q3

REPORT INFORMATION
  Report Type: Spontaneous
  Country: US (occurrence: US)
  Receive Date: 20220913
  Receipt Date: 20220913
  Transmission Date: 20221027
  Serious: No
  Sender: FDA-Public Use
  Company Number: US-CELGENE-USA-20220104108

PATIENT
  Age: 78 Year
  Sex: Male
  Weight: 89.81 kg

DRUGS (1)
  1. POMALYST [Suspect]
     Active Substance: POMALIDOMIDE
     Indication: Plasma cell myeloma
     Dosage: 21 DAYS ON 7DAYS OFF
     Route: 048
     Dates: start: 202004

REACTIONS (2)
  - Localised infection [Recovering/Resolving]
  - Dizziness [Not Recovered/Not Resolved]
